FAERS Safety Report 6448613-X (Version None)
Quarter: 2009Q4

REPORT INFORMATION
  Report Type: 
  Country: None (occurrence: None)
  Receive Date: 20091120
  Receipt Date: 20091113
  Transmission Date: 20100525
  Serious: Yes (Other)
  Sender: FDA-Public Use
  Company Number: JP-ASTRAZENECA-2009SE24521

PATIENT
  Age: 82 Year
  Sex: Male

DRUGS (3)
  1. CASODEX [Suspect]
     Indication: PROSTATE CANCER
     Route: 048
     Dates: start: 20050216, end: 20080911
  2. ZOLADEX [Suspect]
     Indication: PROSTATE CANCER
     Route: 058
     Dates: start: 20051006
  3. LEUPLIN [Concomitant]
     Route: 058
     Dates: start: 20050222, end: 20050101

REACTIONS (2)
  - BREAST CANCER [None]
  - BREAST SWELLING [None]
